FAERS Safety Report 22125136 (Version 1)
Quarter: 2023Q1

REPORT INFORMATION
  Report Type: Spontaneous
  Country: US (occurrence: None)
  Receive Date: 20230321
  Receipt Date: 20230321
  Transmission Date: 20230417
  Serious: Yes (Hospitalization)
  Sender: FDA-Public Use
  Company Number: None

PATIENT
  Sex: Female
  Weight: 77.11 kg

DRUGS (11)
  1. IMATINIB MESYLATE [Suspect]
     Active Substance: IMATINIB MESYLATE
     Indication: Retroperitoneal cancer
     Dosage: FREQUENCY : DAILY;?
     Route: 048
     Dates: start: 202302
  2. IMATINIB MESYLATE [Suspect]
     Active Substance: IMATINIB MESYLATE
     Indication: Malignant peritoneal neoplasm
  3. BENAZEPRIL [Concomitant]
     Active Substance: BENAZEPRIL HYDROCHLORIDE
  4. ELIQUIS [Concomitant]
     Active Substance: APIXABAN
  5. FISH OIL [Concomitant]
     Active Substance: FISH OIL
  6. GLIPIZIDE [Concomitant]
     Active Substance: GLIPIZIDE
  7. LANTUS [Concomitant]
     Active Substance: INSULIN GLARGINE
  8. METOPROLOL [Concomitant]
     Active Substance: METOPROLOL
  9. SIMVASTATIN [Concomitant]
     Active Substance: SIMVASTATIN
  10. SYNTHROID [Concomitant]
     Active Substance: LEVOTHYROXINE SODIUM
  11. VITAMIN D3 [Concomitant]
     Active Substance: CHOLECALCIFEROL

REACTIONS (2)
  - Drug intolerance [None]
  - Ascites [None]
